FAERS Safety Report 5479258-6 (Version None)
Quarter: 2007Q4

REPORT INFORMATION
  Report Type: 
  Country: None (occurrence: None)
  Receive Date: 20071008
  Receipt Date: 20070927
  Transmission Date: 20080405
  Serious: Yes (Disabling)
  Sender: FDA-Public Use
  Company Number: HQWYE375228SEP07

PATIENT
  Age: 46 Year
  Sex: Male
  Weight: 83.99 kg

DRUGS (3)
  1. EFFEXOR XR [Suspect]
     Indication: ANXIETY
     Route: 048
     Dates: start: 20070701, end: 20070707
  2. EFFEXOR XR [Suspect]
     Route: 048
     Dates: start: 20070708, end: 20070714
  3. EFFEXOR XR [Suspect]
     Route: 048
     Dates: start: 20070715, end: 20070915

REACTIONS (7)
  - BALANCE DISORDER [None]
  - DIZZINESS [None]
  - DRUG INEFFECTIVE [None]
  - DRUG WITHDRAWAL SYNDROME [None]
  - MALAISE [None]
  - NAUSEA [None]
  - TINNITUS [None]
